FAERS Safety Report 14181822 (Version 1)
Quarter: 2017Q4

REPORT INFORMATION
  Report Type: Spontaneous
  Country: US (occurrence: None)
  Receive Date: 20171113
  Receipt Date: 20171113
  Transmission Date: 20180321
  Serious: Yes (Disabling)
  Sender: FDA-Public Use
  Company Number: None

PATIENT
  Age: 90 Year
  Sex: Female
  Weight: 57.61 kg

DRUGS (10)
  1. FISH OIL [Concomitant]
     Active Substance: FISH OIL
  2. AMBIEN [Concomitant]
     Active Substance: ZOLPIDEM TARTRATE
  3. MACROBID [Suspect]
     Active Substance: NITROFURANTOIN\NITROFURANTOIN MONOHYDRATE
     Indication: URINARY TRACT INFECTION
     Route: 048
  4. VITAMIN D3 [Concomitant]
     Active Substance: CHOLECALCIFEROL
  5. SUPER B COMPLEX [Concomitant]
     Active Substance: CYANOCOBALAMIN\DEXPANTHENOL\NIACINAMIDE\PYRIDOXINE HYDROCHLORIDE\RIBOFLAVIN 5^-PHOSPHATE SODIUM\THIAMINE HYDROCHLORIDE\VITAMIN B COMPLEX
  6. VITAMIN C [Concomitant]
     Active Substance: ASCORBIC ACID
  7. COLACE [Concomitant]
     Active Substance: DOCUSATE SODIUM
  8. DILTIAZEM. [Concomitant]
     Active Substance: DILTIAZEM
  9. CALCIUM [Concomitant]
     Active Substance: CALCIUM
  10. ADVAIR HFA [Concomitant]
     Active Substance: FLUTICASONE PROPIONATE\SALMETEROL XINAFOATE

REACTIONS (6)
  - Pyrexia [None]
  - Viral infection [None]
  - Cough [None]
  - Pulmonary congestion [None]
  - Bronchitis [None]
  - Urinary tract infection [None]

NARRATIVE: CASE EVENT DATE: 20170811
